FAERS Safety Report 5859129-3 (Version None)
Quarter: 2008Q3

REPORT INFORMATION
  Report Type: 
  Country: None (occurrence: None)
  Receive Date: 20080827
  Receipt Date: 20080823
  Transmission Date: 20090109
  Serious: Yes (Other)
  Sender: FDA-Public Use
  Company Number: PHEH2008US06891

PATIENT
  Sex: Female
  Weight: 72.562 kg

DRUGS (3)
  1. ESTRADERM [Suspect]
     Indication: HYSTERECTOMY
     Dosage: 1.0 MG MON-FRI, 0.5 MG SAT + SUN
     Route: 062
     Dates: end: 20080701
  2. ESTRADERM [Suspect]
     Indication: MENOPAUSAL SYMPTOMS
  3. LOTREL [Concomitant]
     Dosage: 10 MG, QD
     Route: 048

REACTIONS (4)
  - ARTHROSCOPY [None]
  - DEEP VEIN THROMBOSIS [None]
  - INTERNATIONAL NORMALISED RATIO [None]
  - KNEE OPERATION [None]
